FAERS Safety Report 4445585-4 (Version None)
Quarter: 2004Q3

REPORT INFORMATION
  Report Type: 
  Country: None (occurrence: None)
  Receive Date: 20040903
  Receipt Date: 20040826
  Transmission Date: 20050211
  Serious: Yes (Hospitalization, Other)
  Sender: FDA-Public Use
  Company Number: 2004228796CA

PATIENT
  Age: 81 Year
  Sex: Male

DRUGS (9)
  1. FRAGMIN [Suspect]
     Indication: PULMONARY EMBOLISM
     Dosage: 10000 U, BID, SUBCUTANEOUS
     Route: 058
     Dates: start: 20031020
  2. SENOKOT [Concomitant]
  3. PREDNISONE [Concomitant]
  4. FOLATE SODIUM (FOLATE SODIUM) [Concomitant]
  5. SYNTHROID [Concomitant]
  6. FLUCONAZOLE [Concomitant]
  7. FOSAMAX [Concomitant]
  8. CALCIUM [Concomitant]
  9. SULFATRIM [Concomitant]

REACTIONS (2)
  - COMPARTMENT SYNDROME [None]
  - INJURY [None]
